FAERS Safety Report 4763378-5 (Version None)
Quarter: 2005Q3

REPORT INFORMATION
  Report Type: 
  Country: None (occurrence: None)
  Receive Date: 20050908
  Receipt Date: 20050727
  Transmission Date: 20060218
  Serious: Yes (Hospitalization)
  Sender: FDA-Public Use
  Company Number: JP-NOVOPROD-245911

PATIENT
  Age: 42 Year
  Sex: Female
  Weight: 43 kg

DRUGS (3)
  1. NOVOLIN R [Suspect]
     Indication: INSULIN-REQUIRING TYPE II DIABETES MELLITUS
     Dosage: SLIDING SCALE
     Dates: start: 20040821, end: 20040902
  2. NOVOLIN R [Suspect]
     Indication: INSULIN-REQUIRING TYPE II DIABETES MELLITUS
     Dosage: 20 IU, 14+0+6+0
     Dates: start: 20040902
  3. HUMULIN R [Concomitant]
     Indication: INSULIN-REQUIRING TYPE II DIABETES MELLITUS
     Dosage: 18 IU, 8+4+4+2
     Dates: start: 20040821, end: 20040901

REACTIONS (2)
  - GLYCOGEN STORAGE DISORDER [None]
  - HEPATOMEGALY [None]
